FAERS Safety Report 9767992 (Version 1)
Quarter: 2013Q4

REPORT INFORMATION
  Report Type: Spontaneous
  Country: US (occurrence: None)
  Receive Date: 20131217
  Receipt Date: 20131217
  Transmission Date: 20140711
  Serious: Yes (Other)
  Sender: FDA-Public Use
  Company Number: 2013BAX007096

PATIENT
  Age: 67 Year
  Sex: Female
  Weight: 88 kg

DRUGS (1)
  1. GAMMAGARD LIQUID [Suspect]
     Indication: IMMUNE THROMBOCYTOPENIC PURPURA
     Dosage: 0.6667 GM (20 GM,1 IN 1 M), INTRAVENOUS?

REACTIONS (2)
  - Pruritus [None]
  - Flushing [None]
